FAERS Safety Report 5772301-6 (Version None)
Quarter: 2008Q2

REPORT INFORMATION
  Report Type: 
  Country: None (occurrence: None)
  Receive Date: 20080611
  Receipt Date: 20080530
  Transmission Date: 20081010
  Serious: No
  Sender: FDA-Public Use
  Company Number: 2008-178278-NL

PATIENT
  Age: 59 Year
  Sex: Male

DRUGS (3)
  1. DEXAMETHASONE TAB [Suspect]
     Indication: KERATITIS
     Dosage: DF OPHTHALMIC
     Route: 047
     Dates: start: 20050101
  2. CEFUROXIME [Suspect]
     Indication: KERATITIS
     Dosage: DF OPHTHALMIC
     Route: 047
     Dates: start: 20040101
  3. OFLOXACIN [Suspect]
     Indication: KERATITIS
     Dosage: 1 DF
     Dates: start: 20040101

REACTIONS (1)
  - CORNEAL DEPOSITS [None]
